FAERS Safety Report 13768433 (Version 1)
Quarter: 2017Q3

REPORT INFORMATION
  Report Type: Spontaneous
  Country: IT (occurrence: IT)
  Receive Date: 20170719
  Receipt Date: 20170719
  Transmission Date: 20171127
  Serious: Yes (Hospitalization, Other)
  Sender: FDA-Public Use
  Company Number: IT-STRIDES ARCOLAB LIMITED-2017SP010870

PATIENT

DRUGS (17)
  1. METHOTREXATE. [Suspect]
     Active Substance: METHOTREXATE
     Dosage: 10 MG/M2, (ON DAYS 3, 6, AND 11)
     Route: 065
  2. IDARUBICIN [Concomitant]
     Active Substance: IDARUBICIN
     Indication: REFRACTORY ANAEMIA WITH AN EXCESS OF BLASTS
     Dosage: 10 MG/M2, 2 CYCLICAL (DAYS 1-3)
     Route: 065
  3. BUSULFAN. [Concomitant]
     Active Substance: BUSULFAN
     Indication: HAEMATOPOIETIC STEM CELL MOBILISATION
     Dosage: 3.2 MG/KG, PER DAY  (DAYS -7 TO -4)
     Route: 065
  4. CYTARABINE. [Concomitant]
     Active Substance: CYTARABINE
     Indication: REFRACTORY ANAEMIA WITH AN EXCESS OF BLASTS
     Dosage: 2000 MG/M2, 2 CYCLICAL DAYS 1-5
     Route: 065
  5. METHOTREXATE. [Suspect]
     Active Substance: METHOTREXATE
     Indication: PROPHYLAXIS AGAINST GRAFT VERSUS HOST DISEASE
     Dosage: 15 MG/M2, UNKNOWN
  6. RUXOLITINIB [Suspect]
     Active Substance: RUXOLITINIB
     Dosage: 5 MG, QOD
     Route: 048
  7. CYCLOPHOSPHAMIDE. [Suspect]
     Active Substance: CYCLOPHOSPHAMIDE
     Indication: STEM CELL TRANSPLANT
  8. BUSULFAN. [Concomitant]
     Active Substance: BUSULFAN
     Indication: STEM CELL TRANSPLANT
  9. MYCOPHENOLATE MOFETIL. [Suspect]
     Active Substance: MYCOPHENOLATE MOFETIL
     Indication: STEM CELL TRANSPLANT
     Dosage: 1 G, TID
     Route: 042
  10. BUDESONIDE. [Suspect]
     Active Substance: BUDESONIDE
     Indication: STEM CELL TRANSPLANT
     Dosage: 3 MG, TID
     Route: 048
  11. RUXOLITINIB [Suspect]
     Active Substance: RUXOLITINIB
     Indication: GRAFT VERSUS HOST DISEASE
     Dosage: 5 MG, BID
     Route: 048
  12. PREDNISOLONE. [Suspect]
     Active Substance: PREDNISOLONE
     Indication: STEM CELL TRANSPLANT
     Dosage: UNK
     Route: 065
  13. FLUDARABINE [Suspect]
     Active Substance: FLUDARABINE PHOSPHATE
     Indication: REFRACTORY ANAEMIA WITH AN EXCESS OF BLASTS
     Dosage: 30 MG/M2, 2 CYCLICAL (DAYS 1-5)
     Route: 065
  14. CYCLOSPORINE. [Suspect]
     Active Substance: CYCLOSPORINE
     Indication: PROPHYLAXIS AGAINST GRAFT VERSUS HOST DISEASE
     Dosage: 1.5 MG/KG, BID FROM DAY -1
     Route: 065
  15. ANTITHYMOCYTE IMMUNOGLOBULIN [Suspect]
     Active Substance: THYMOCYTE IMMUNE GLOBULIN NOS
     Indication: PROPHYLAXIS AGAINST GRAFT VERSUS HOST DISEASE
     Dosage: 2.5 MG/KG, (ON DAYS -3 AND-2)
     Route: 065
  16. RUXOLITINIB [Suspect]
     Active Substance: RUXOLITINIB
     Dosage: 5 MG, PER DAY
     Route: 048
  17. CYCLOPHOSPHAMIDE. [Suspect]
     Active Substance: CYCLOPHOSPHAMIDE
     Indication: HAEMATOPOIETIC STEM CELL MOBILISATION
     Dosage: 60 MG/KG,PER DAY  (DAYS -3 AND -2)
     Route: 065

REACTIONS (3)
  - Drug ineffective for unapproved indication [Unknown]
  - Pancytopenia [Recovered/Resolved]
  - Off label use [Unknown]
